FAERS Safety Report 9194428 (Version 1)
Quarter: 2013Q1

REPORT INFORMATION
  Report Type: Spontaneous
  Country: US (occurrence: US)
  Receive Date: 20130327
  Receipt Date: 20130327
  Transmission Date: 20140127
  Serious: Yes (Other)
  Sender: FDA-Public Use
  Company Number: US-PFIZER INC-2012297585

PATIENT
  Sex: 0

DRUGS (1)
  1. TOVIAZ [Suspect]
     Indication: HYPERTONIC BLADDER
     Dosage: UNK

REACTIONS (7)
  - Urinary retention [Unknown]
  - Dysphagia [Unknown]
  - Drug effect incomplete [Unknown]
  - Pollakiuria [Not Recovered/Not Resolved]
  - Constipation [Unknown]
  - Gastrooesophageal reflux disease [Unknown]
  - Mucosal dryness [Unknown]
